FAERS Safety Report 17280189 (Version 5)
Quarter: 2021Q1

REPORT INFORMATION
  Report Type: Spontaneous
  Country: JP (occurrence: JP)
  Receive Date: 20200117
  Receipt Date: 20210217
  Transmission Date: 20210419
  Serious: Yes (Hospitalization, Other)
  Sender: FDA-Public Use
  Company Number: JP-UCBSA-2020002303

PATIENT
  Age: 55 Year
  Sex: Male
  Weight: 61 kg

DRUGS (12)
  1. E KEPPRA [Suspect]
     Active Substance: LEVETIRACETAM
     Indication: STATUS EPILEPTICUS
  2. ACICLOVIR [Concomitant]
     Active Substance: ACYCLOVIR
     Indication: SEIZURE
     Dosage: 350 MILLIGRAM, 3X/DAY (TID)
     Route: 041
     Dates: start: 20190415, end: 20190416
  3. E KEPPRA [Suspect]
     Active Substance: LEVETIRACETAM
     Indication: OFF LABEL USE
  4. QUETIAPINE FUMARATE. [Concomitant]
     Active Substance: QUETIAPINE FUMARATE
     Indication: PSYCHIATRIC SYMPTOM
     Dosage: 50 MG DAILY
     Route: 048
  5. DIAZEPAM. [Concomitant]
     Active Substance: DIAZEPAM
     Indication: SEIZURE
     Dosage: UNK
  6. ZOLPIDEM TARTRATE. [Concomitant]
     Active Substance: ZOLPIDEM TARTRATE
     Indication: INSOMNIA
     Dosage: UNK
     Route: 048
  7. SUVOREXANT. [Concomitant]
     Active Substance: SUVOREXANT
     Indication: INSOMNIA
     Dosage: UNK
     Route: 048
  8. E KEPPRA [Suspect]
     Active Substance: LEVETIRACETAM
     Indication: SEIZURE
     Dosage: 1000 MILLIGRAM, 2X/DAY (BID)
     Route: 041
     Dates: start: 20190413, end: 20190417
  9. LITHIUM CARBONATE. [Concomitant]
     Active Substance: LITHIUM CARBONATE
     Indication: PSYCHIATRIC SYMPTOM
     Dosage: UNK
     Route: 048
  10. NOBELBAR [Concomitant]
     Active Substance: PHENOBARBITAL SODIUM
     Indication: SEIZURE
     Dosage: 1000 MILLIGRAM, DAILY
     Route: 041
     Dates: start: 20190415, end: 20190415
  11. FOSTOIN [Concomitant]
     Active Substance: FOSPHENYTOIN SODIUM
     Indication: SEIZURE
     Dosage: 375MG DAILY
     Route: 041
     Dates: start: 20190414, end: 20190417
  12. FLUNITRAZEPAM [Concomitant]
     Active Substance: FLUNITRAZEPAM
     Indication: PSYCHIATRIC SYMPTOM
     Dosage: 1 MG DAILY
     Route: 048
     Dates: end: 20200507

REACTIONS (4)
  - Bronchitis [Recovered/Resolved]
  - Blood creatine phosphokinase increased [Recovered/Resolved]
  - Off label use [Unknown]
  - Status epilepticus [Recovered/Resolved]

NARRATIVE: CASE EVENT DATE: 20190413
